FAERS Safety Report 17911774 (Version 28)
Quarter: 2025Q1

REPORT INFORMATION
  Report Type: Report from Study
  Country: US (occurrence: US)
  Receive Date: 20200618
  Receipt Date: 20250305
  Transmission Date: 20250408
  Serious: Yes (Other)
  Sender: TAKEDA
  Company Number: US-SHIRE-US202019883

PATIENT
  Age: 75 Year
  Sex: Male
  Weight: 99.77 kg

DRUGS (53)
  1. HUMAN IMMUNOGLOBULIN G [Suspect]
     Active Substance: HUMAN IMMUNOGLOBULIN G
     Indication: Immunodeficiency common variable
     Dosage: 50 GRAM, Q4WEEKS
     Dates: start: 20121119
  2. HUMAN IMMUNOGLOBULIN G [Suspect]
     Active Substance: HUMAN IMMUNOGLOBULIN G
     Dosage: 50 GRAM, Q4WEEKS
     Dates: start: 20130202
  3. HUMAN IMMUNOGLOBULIN G [Suspect]
     Active Substance: HUMAN IMMUNOGLOBULIN G
     Dosage: 50 GRAM, 1/WEEK
  4. HUMAN IMMUNOGLOBULIN G [Suspect]
     Active Substance: HUMAN IMMUNOGLOBULIN G
     Dosage: 50 GRAM, Q4WEEKS
  5. EPINEPHRINE [Concomitant]
     Active Substance: EPINEPHRINE
  6. ACETAMINOPHEN [Concomitant]
     Active Substance: ACETAMINOPHEN
  7. CIALIS [Concomitant]
     Active Substance: TADALAFIL
  8. OMEPRAZOLE [Concomitant]
     Active Substance: OMEPRAZOLE
  9. CAFFEINE [Concomitant]
     Active Substance: CAFFEINE
  10. UNISOM SLEEPTABS [Concomitant]
     Active Substance: DOXYLAMINE SUCCINATE
  11. ELIQUIS [Concomitant]
     Active Substance: APIXABAN
  12. PEPCID [Concomitant]
     Active Substance: FAMOTIDINE
  13. SODIUM CHLORIDE [Concomitant]
     Active Substance: SODIUM CHLORIDE
  14. VITAMIN D3 [Concomitant]
     Active Substance: CHOLECALCIFEROL
  15. MAGNESIUM [Concomitant]
     Active Substance: MAGNESIUM
  16. PRASTERONE [Concomitant]
     Active Substance: PRASTERONE
  17. NORCO [Concomitant]
     Active Substance: ACETAMINOPHEN\HYDROCODONE BITARTRATE
  18. ZYRTEC [Concomitant]
     Active Substance: CETIRIZINE HYDROCHLORIDE
  19. LIDOCAINE\PRILOCAINE [Concomitant]
     Active Substance: LIDOCAINE\PRILOCAINE
  20. ZINC [Concomitant]
     Active Substance: ZINC
  21. METAXALONE [Concomitant]
     Active Substance: METAXALONE
  22. IRON [Concomitant]
     Active Substance: IRON
  23. WELLBUTRIN XL [Concomitant]
     Active Substance: BUPROPION HYDROCHLORIDE
  24. DIPHENHYDRAMINE [Concomitant]
     Active Substance: DIPHENHYDRAMINE
  25. IPRATROPIUM BROMIDE [Concomitant]
     Active Substance: IPRATROPIUM BROMIDE
  26. COUMADIN [Concomitant]
     Active Substance: WARFARIN SODIUM
  27. TRAZODONE HCL [Concomitant]
     Active Substance: TRAZODONE HYDROCHLORIDE
  28. DEXTROSE [Concomitant]
     Active Substance: DEXTROSE MONOHYDRATE
  29. FOLIC ACID [Concomitant]
     Active Substance: FOLIC ACID
  30. ANDROGEL [Concomitant]
     Active Substance: TESTOSTERONE
  31. METAMUCIL [Concomitant]
     Active Substance: PLANTAGO SEED
  32. PRILOSEC [Concomitant]
     Active Substance: OMEPRAZOLE MAGNESIUM
  33. TIZANIDINE [Concomitant]
     Active Substance: TIZANIDINE
  34. ROPINIROLE [Concomitant]
     Active Substance: ROPINIROLE
  35. NEFAZODONE [Concomitant]
     Active Substance: NEFAZODONE
  36. ALEVE [Concomitant]
     Active Substance: NAPROXEN SODIUM
  37. TOPROL XL [Concomitant]
     Active Substance: METOPROLOL SUCCINATE
  38. LOSARTAN [Concomitant]
     Active Substance: LOSARTAN
  39. BENTYL [Concomitant]
     Active Substance: DICYCLOMINE HYDROCHLORIDE
  40. Aspercreme [Concomitant]
  41. FLUBLOK QUADRIVALENT NOS [Concomitant]
     Active Substance: INFLUENZA VIRUS VACCINE
  42. AUGMENTIN [Concomitant]
     Active Substance: AMOXICILLIN\CLAVULANATE POTASSIUM
  43. PYRIDIUM [Concomitant]
     Active Substance: PHENAZOPYRIDINE
  44. TIZANIDINE HYDROCHLORIDE [Concomitant]
     Active Substance: TIZANIDINE HYDROCHLORIDE
  45. DOXYCYCLINE HYCLATE [Concomitant]
     Active Substance: DOXYCYCLINE HYCLATE
  46. CIPROFLOXACIN HYDROCHLORIDE [Concomitant]
     Active Substance: CIPROFLOXACIN HYDROCHLORIDE
  47. Sodium sulfacetamide + sulfur [Concomitant]
  48. DIPHENHYDRAMINE HYDROCHLORIDE [Concomitant]
     Active Substance: DIPHENHYDRAMINE HYDROCHLORIDE
  49. NYSTATIN [Concomitant]
     Active Substance: NYSTATIN
  50. B active [Concomitant]
  51. PREDNISOLONE ACETATE [Concomitant]
     Active Substance: PREDNISOLONE ACETATE
  52. Brimonidine tartrate;Timolol [Concomitant]
  53. AZELASTINE HYDROCHLORIDE [Concomitant]
     Active Substance: AZELASTINE HYDROCHLORIDE

REACTIONS (18)
  - Prostate infection [Not Recovered/Not Resolved]
  - Road traffic accident [Unknown]
  - Thrombosis [Unknown]
  - Infusion related reaction [Unknown]
  - Hordeolum [Unknown]
  - Urinary tract infection [Unknown]
  - COVID-19 [Recovered/Resolved]
  - Musculoskeletal pain [Unknown]
  - Dysuria [Unknown]
  - Skin abrasion [Unknown]
  - Incorrect drug administration rate [Unknown]
  - Infection [Unknown]
  - Rhinorrhoea [Unknown]
  - Pain [Unknown]
  - Eye pain [Unknown]
  - Infusion site pruritus [Unknown]
  - Cough [Unknown]
  - Headache [Unknown]

NARRATIVE: CASE EVENT DATE: 20230215
